FAERS Safety Report 18373030 (Version 3)
Quarter: 2020Q4

REPORT INFORMATION
  Report Type: Spontaneous
  Country: US (occurrence: US)
  Receive Date: 20201012
  Receipt Date: 20201023
  Transmission Date: 20210114
  Serious: Yes (Death, Other)
  Sender: FDA-Public Use
  Company Number: US-PFIZER INC-2020375106

PATIENT
  Age: 71 Year
  Sex: Male
  Weight: 92 kg

DRUGS (1)
  1. IBRANCE [Suspect]
     Active Substance: PALBOCICLIB
     Indication: HORMONE-REFRACTORY PROSTATE CANCER
     Dosage: 75 MG, CYCLIC (ONCE DAILY, CONTINUOUSLY, FOR 28 DAYS OF THE 28-DAY CYCLE)
     Route: 048
     Dates: start: 20200918

REACTIONS (6)
  - Cerebral haemorrhage [Fatal]
  - Off label use [Unknown]
  - Pancytopenia [Fatal]
  - Brain herniation [Unknown]
  - Product use in unapproved indication [Unknown]
  - Platelet count decreased [Fatal]

NARRATIVE: CASE EVENT DATE: 20200918
